FAERS Safety Report 7458386-X (Version None)
Quarter: 2011Q2

REPORT INFORMATION
  Report Type: 
  Country: None (occurrence: None)
  Receive Date: 20110504
  Receipt Date: 20110427
  Transmission Date: 20111010
  Serious: Yes (Hospitalization, Other)
  Sender: FDA-Public Use
  Company Number: A0921327A

PATIENT
  Age: 73 Year
  Sex: Female
  Weight: 93 kg

DRUGS (10)
  1. TORSEMIDE [Concomitant]
     Dosage: 30MG TWICE PER DAY
     Route: 048
  2. FLOLAN [Suspect]
     Indication: PULMONARY ARTERIAL HYPERTENSION
     Dosage: 38NGKM CONTINUOUS
     Route: 042
     Dates: start: 20090803
  3. HYDRALAZINE HCL [Concomitant]
     Dosage: 25MG TWICE PER DAY
     Route: 048
  4. COUMADIN [Concomitant]
     Dosage: 10MG PER DAY
     Route: 048
  5. AMARYL [Concomitant]
     Dosage: .5MG PER DAY
     Route: 048
  6. PROBENECID [Concomitant]
  7. NOVOLOG [Concomitant]
  8. REVATIO [Concomitant]
     Dosage: 20MG THREE TIMES PER DAY
     Route: 048
  9. ALLOPURINOL [Concomitant]
     Dosage: 50MG TWICE PER DAY
     Route: 048
  10. SPIRONOLACTONE [Concomitant]
     Dosage: 12.5MG PER DAY

REACTIONS (8)
  - DYSPNOEA [None]
  - LOBAR PNEUMONIA [None]
  - CATHETER SITE INFECTION [None]
  - DEVICE RELATED SEPSIS [None]
  - GRAM STAIN POSITIVE [None]
  - DIARRHOEA [None]
  - HYPOXIA [None]
  - ANAEMIA [None]
